FAERS Safety Report 9198046 (Version 1)
Quarter: 2013Q1

REPORT INFORMATION
  Report Type: Spontaneous
  Country: US (occurrence: US)
  Receive Date: 20130328
  Receipt Date: 20130328
  Transmission Date: 20140127
  Serious: Yes (Other)
  Sender: FDA-Public Use
  Company Number: US-BAYER-2013-039529

PATIENT
  Age: 33 Year
  Sex: Male
  Weight: 69.84 kg

DRUGS (3)
  1. ALEVE CAPLET/TABLET,MIDOL EXTENDED RELIEF CAPLET [Suspect]
     Dosage: 1 DF, ONCE
     Route: 048
     Dates: start: 20130325, end: 20130325
  2. ANTIBIOTICS [Concomitant]
  3. IBUPROFEN [Concomitant]

REACTIONS (4)
  - Hallucination, visual [Recovered/Resolved]
  - Palpitations [Recovered/Resolved]
  - Tremor [Recovered/Resolved]
  - Vision blurred [Recovered/Resolved]
